FAERS Safety Report 5092917-2 (Version None)
Quarter: 2006Q3

REPORT INFORMATION
  Report Type: 
  Country: None (occurrence: None)
  Receive Date: 20060726
  Receipt Date: 20010702
  Transmission Date: 20061208
  Serious: Yes (Other)
  Sender: FDA-Public Use
  Company Number: 2013374

PATIENT
  Age: 52 Year
  Sex: Male

DRUGS (2)
  1. MS CONTIN [Suspect]
     Indication: PAIN
  2. NICOTINE [Suspect]
     Indication: DRUG USE FOR UNKNOWN INDICATION

REACTIONS (6)
  - ASTHENIA [None]
  - DRUG DEPENDENCE [None]
  - DRUG WITHDRAWAL SYNDROME [None]
  - HYPERHIDROSIS [None]
  - MOOD SWINGS [None]
  - VOMITING [None]
